FAERS Safety Report 6649793-3 (Version None)
Quarter: 2010Q1

REPORT INFORMATION
  Report Type: 
  Country: None (occurrence: None)
  Receive Date: 20100322
  Receipt Date: 20100310
  Transmission Date: 20100710
  Serious: Yes (Other)
  Sender: FDA-Public Use
  Company Number: 232489J10USA

PATIENT
  Age: 41 Year
  Sex: Female

DRUGS (2)
  1. REBIF [Suspect]
     Indication: MULTIPLE SCLEROSIS
     Dosage: 44 MCG, 3 IN 1 WEEKS, SUBCUTANEOUS
     Route: 058
     Dates: start: 20090612
  2. NAPROXEN [Concomitant]

REACTIONS (3)
  - BIOPSY CERVIX ABNORMAL [None]
  - PRECANCEROUS CELLS PRESENT [None]
  - UTERINE DISORDER [None]
